FAERS Safety Report 7957573-1 (Version None)
Quarter: 2011Q4

REPORT INFORMATION
  Report Type: 
  Country: None (occurrence: None)
  Receive Date: 20111205
  Receipt Date: 20111128
  Transmission Date: 20120403
  Serious: Yes (Other)
  Sender: FDA-Public Use
  Company Number: JP-GLAXOSMITHKLINE-B0766545A

PATIENT
  Age: 81 Year
  Sex: Male

DRUGS (2)
  1. VALTREX [Suspect]
     Indication: HERPES ZOSTER
     Dosage: 2000MG PER DAY
     Route: 048
     Dates: start: 20111125, end: 20111128
  2. UNKNOWN DRUG [Concomitant]
     Indication: DIALYSIS
     Route: 065

REACTIONS (2)
  - DYSARTHRIA [None]
  - NEUROTOXICITY [None]
